FAERS Safety Report 9126127 (Version 1)
Quarter: 2013Q1

REPORT INFORMATION
  Report Type: Spontaneous
  Country: US (occurrence: US)
  Receive Date: 20130117
  Receipt Date: 20130117
  Transmission Date: 20140127
  Serious: Yes (Hospitalization)
  Sender: FDA-Public Use
  Company Number: US-GLAXOSMITHKLINE-A0833487A

PATIENT
  Age: 38 Year
  Sex: Male

DRUGS (3)
  1. AVANDIA [Suspect]
     Indication: DIABETES MELLITUS
     Dosage: 8MG PER DAY
     Route: 048
     Dates: start: 200012, end: 2007
  2. AVANDAMET [Suspect]
     Indication: DIABETES MELLITUS
     Route: 048
  3. CELEBREX [Concomitant]

REACTIONS (4)
  - Myocardial infarction [Not Recovered/Not Resolved]
  - Angina pectoris [Unknown]
  - Cardiac failure congestive [Unknown]
  - Cardiac disorder [Unknown]
